FAERS Safety Report 18365198 (Version 1)
Quarter: 2020Q4

REPORT INFORMATION
  Report Type: Report from Study
  Country: CA (occurrence: CA)
  Receive Date: 20201009
  Receipt Date: 20201009
  Transmission Date: 20210114
  Serious: Yes (Hospitalization)
  Sender: FDA-Public Use
  Company Number: CA-HLS-202000983

PATIENT
  Sex: Male

DRUGS (1)
  1. CLOZARIL [Suspect]
     Active Substance: CLOZAPINE
     Indication: PRODUCT USED FOR UNKNOWN INDICATION
     Route: 048
     Dates: start: 19900406

REACTIONS (6)
  - Spinal column injury [Unknown]
  - Tinea cruris [Unknown]
  - Abdominal hernia [Unknown]
  - Staphylococcal bacteraemia [Unknown]
  - Coronary artery disease [Unknown]
  - Repetitive speech [Unknown]
